FAERS Safety Report 17451960 (Version 1)
Quarter: 2020Q1

REPORT INFORMATION
  Report Type: Spontaneous
  Country: US (occurrence: US)
  Receive Date: 20200224
  Receipt Date: 20200224
  Transmission Date: 20200409
  Serious: Yes (Death, Hospitalization)
  Sender: FDA-Public Use
  Company Number: US-PFIZER INC-2020078715

PATIENT
  Age: 36 Year
  Sex: Female

DRUGS (12)
  1. NOREPINEPHRINE BITARTRATE. [Suspect]
     Active Substance: NOREPINEPHRINE BITARTRATE
     Indication: BRAIN INJURY
     Dosage: UNK
  2. NALOXONE HCL [Suspect]
     Active Substance: NALOXONE HYDROCHLORIDE
     Indication: TOXICITY TO VARIOUS AGENTS
     Dosage: UNK
  3. SODIUM BICARBONATE. [Suspect]
     Active Substance: SODIUM BICARBONATE
     Indication: BRAIN STEM ISCHAEMIA
  4. PENTOBARBITAL. [Concomitant]
     Active Substance: PENTOBARBITAL
  5. NOREPINEPHRINE BITARTRATE. [Suspect]
     Active Substance: NOREPINEPHRINE BITARTRATE
     Indication: BRAIN STEM ISCHAEMIA
  6. DOPAMINE HCL [Suspect]
     Active Substance: DOPAMINE HYDROCHLORIDE
     Indication: BRAIN STEM ISCHAEMIA
  7. SODIUM BICARBONATE. [Suspect]
     Active Substance: SODIUM BICARBONATE
     Indication: BRAIN INJURY
     Dosage: DRIPS
  8. FAT EMULSION NOS [Suspect]
     Active Substance: EGG PHOSPHOLIPIDS\SAFFLOWER OIL\SOYBEAN OIL
     Indication: BRAIN STEM ISCHAEMIA
  9. ADRENALINE [Suspect]
     Active Substance: EPINEPHRINE
     Indication: BRAIN STEM ISCHAEMIA
     Dosage: UNK
  10. ADRENALINE [Suspect]
     Active Substance: EPINEPHRINE
     Indication: BRAIN INJURY
  11. DOPAMINE HCL [Suspect]
     Active Substance: DOPAMINE HYDROCHLORIDE
     Indication: BRAIN INJURY
     Dosage: UNK
  12. FAT EMULSION NOS [Suspect]
     Active Substance: EGG PHOSPHOLIPIDS\SAFFLOWER OIL\SOYBEAN OIL
     Indication: BRAIN INJURY
     Dosage: UNK
     Route: 042

REACTIONS (1)
  - Drug ineffective [Fatal]
